FAERS Safety Report 13000795 (Version 1)
Quarter: 2016Q4

REPORT INFORMATION
  Report Type: Report from Study
  Country: None (occurrence: US)
  Receive Date: 20161206
  Receipt Date: 20161206
  Transmission Date: 20170207
  Serious: Yes (Life-Threatening, Hospitalization, Other)
  Sender: FDA-Public Use
  Company Number: US-ABBVIE-16K-163-1795379-00

PATIENT
  Age: 73 Year
  Sex: Female
  Weight: 61.29 kg

DRUGS (2)
  1. NIFEDIPINE. [Concomitant]
     Active Substance: NIFEDIPINE
     Indication: PRODUCT USED FOR UNKNOWN INDICATION
  2. HUMIRA [Suspect]
     Active Substance: ADALIMUMAB
     Indication: CROHN^S DISEASE
     Route: 058
     Dates: start: 201608, end: 201610

REACTIONS (12)
  - Tricuspid valve incompetence [Not Recovered/Not Resolved]
  - Hypertension [Unknown]
  - Cardiac arrest [Recovered/Resolved]
  - Pulmonary oedema [Recovered/Resolved]
  - Arteriosclerosis coronary artery [Not Recovered/Not Resolved]
  - Ventricular fibrillation [Recovered/Resolved]
  - Nasopharyngitis [Recovered/Resolved]
  - Cardiomyopathy [Not Recovered/Not Resolved]
  - Cardiac failure congestive [Not Recovered/Not Resolved]
  - Left ventricular enlargement [Not Recovered/Not Resolved]
  - Blood potassium increased [Not Recovered/Not Resolved]
  - Blood magnesium decreased [Not Recovered/Not Resolved]

NARRATIVE: CASE EVENT DATE: 201610
